FAERS Safety Report 4349168-6 (Version None)
Quarter: 2004Q2

REPORT INFORMATION
  Report Type: 
  Country: None (occurrence: None)
  Receive Date: 20040427
  Receipt Date: 20030521
  Transmission Date: 20050107
  Serious: Yes (Hospitalization)
  Sender: FDA-Public Use
  Company Number: 000550

PATIENT
  Age: 51 Year
  Sex: Male

DRUGS (4)
  1. ZEVALIN [Suspect]
     Indication: NON-HODGKIN'S LYMPHOMA
     Dosage: SINGLE, RITUXAN DOSE 1, INTRAVENOUS
     Route: 042
  2. ZEVALIN [Suspect]
     Dosage: SINGLE, IN-[111] ZEVALIN, INTRAVENOUS
     Route: 042
  3. ZEVALIN [Suspect]
     Dosage: SINGLE, RITUXAN DOSE 2, INTRAVENOUS
     Route: 042
     Dates: start: 20030401, end: 20030401
  4. ZEVALIN [Suspect]
     Dosage: SINGLE, Y-[90] ZEVALIN, INTRAVENOUS
     Route: 042
     Dates: start: 20030401, end: 20030401

REACTIONS (3)
  - FEBRILE NEUTROPENIA [None]
  - INFECTION [None]
  - PANCYTOPENIA [None]
